FAERS Safety Report 7607783-8 (Version None)
Quarter: 2011Q3

REPORT INFORMATION
  Report Type: 
  Country: None (occurrence: None)
  Receive Date: 20110713
  Receipt Date: 20110623
  Transmission Date: 20111222
  Serious: Yes (Death)
  Sender: FDA-Public Use
  Company Number: PHHY2011CZ51616

PATIENT
  Sex: Female

DRUGS (4)
  1. FENTANYL [Concomitant]
     Route: 062
  2. NSAID'S [Concomitant]
  3. ANODYNE [Concomitant]
     Route: 048
  4. ZOMETA [Suspect]
     Indication: METASTASES TO BONE
     Dosage: UNK
     Dates: start: 20070709

REACTIONS (2)
  - NEOPLASM PROGRESSION [None]
  - NEOPLASM MALIGNANT [None]
